FAERS Safety Report 19679994 (Version 1)
Quarter: 2021Q3

REPORT INFORMATION
  Report Type: Spontaneous
  Country: FR (occurrence: FR)
  Receive Date: 20210809
  Receipt Date: 20210809
  Transmission Date: 20211014
  Serious: Yes (Other)
  Sender: FDA-Public Use
  Company Number: NVSC2021FR174583

PATIENT
  Age: 67 Year
  Sex: Male

DRUGS (3)
  1. SANDOSTATINE [Suspect]
     Active Substance: OCTREOTIDE ACETATE
  2. SANDOSTATINE [Suspect]
     Active Substance: OCTREOTIDE ACETATE
  3. SANDOSTATINE [Suspect]
     Active Substance: OCTREOTIDE ACETATE
     Indication: PITUITARY TUMOUR BENIGN
     Dosage: UNK (NON RENSEIGNEE)
     Route: 059
     Dates: start: 2012, end: 201909

REACTIONS (1)
  - Pain in extremity [Recovering/Resolving]

NARRATIVE: CASE EVENT DATE: 2012
